FAERS Safety Report 19685598 (Version 1)
Quarter: 2021Q3

REPORT INFORMATION
  Report Type: Spontaneous
  Country: TR (occurrence: TR)
  Receive Date: 20210811
  Receipt Date: 20210811
  Transmission Date: 20211014
  Serious: Yes (Death, Other)
  Sender: FDA-Public Use
  Company Number: TR-SUN PHARMACEUTICAL INDUSTRIES LTD-2021RR-307334

PATIENT
  Sex: Female
  Weight: 2.55 kg

DRUGS (1)
  1. ISOTRETINOIN. [Suspect]
     Active Substance: ISOTRETINOIN
     Indication: ACNE CYSTIC
     Dosage: 40 MILLIGRAM, DAILY
     Route: 065

REACTIONS (9)
  - Premature baby [Unknown]
  - Craniofacial deformity [Unknown]
  - Heart disease congenital [Unknown]
  - Atrial septal defect [Unknown]
  - Cardiac failure congestive [Fatal]
  - Dextrocardia [Unknown]
  - Patent ductus arteriosus [Unknown]
  - Foetal exposure during pregnancy [Unknown]
  - Ventricular septal defect [Unknown]
